FAERS Safety Report 9846146 (Version 8)
Quarter: 2015Q3

REPORT INFORMATION
  Report Type: Report from Study
  Country: US (occurrence: US)
  Receive Date: 20140127
  Receipt Date: 20150826
  Transmission Date: 20151125
  Serious: Yes (Other)
  Sender: FDA-Public Use
  Company Number: US-SA-2013SA107149

PATIENT
  Age: 43 Year
  Sex: Male

DRUGS (4)
  1. AUBAGIO [Suspect]
     Active Substance: TERIFLUNOMIDE
     Indication: MULTIPLE SCLEROSIS
     Route: 048
     Dates: start: 20130514
  2. JANUVIA [Concomitant]
     Active Substance: SITAGLIPTIN PHOSPHATE
     Indication: TYPE 2 DIABETES MELLITUS
     Dates: start: 201506
  3. AUBAGIO [Suspect]
     Active Substance: TERIFLUNOMIDE
     Indication: MULTIPLE SCLEROSIS
     Route: 048
  4. AUBAGIO [Suspect]
     Active Substance: TERIFLUNOMIDE
     Indication: MULTIPLE SCLEROSIS
     Route: 048

REACTIONS (11)
  - Alopecia [Not Recovered/Not Resolved]
  - Inappropriate schedule of drug administration [Unknown]
  - Optic neuritis [Not Recovered/Not Resolved]
  - Paraesthesia [Unknown]
  - Condition aggravated [Unknown]
  - Drug dose omission [Unknown]
  - Liver function test abnormal [Not Recovered/Not Resolved]
  - Syncope [Unknown]
  - Multiple sclerosis relapse [Not Recovered/Not Resolved]
  - Tremor [Recovering/Resolving]
  - Hypoaesthesia [Recovering/Resolving]

NARRATIVE: CASE EVENT DATE: 2014
